FAERS Safety Report 8080225-7 (Version None)
Quarter: 2012Q1

REPORT INFORMATION
  Report Type: 
  Country: None (occurrence: None)
  Receive Date: 20120127
  Receipt Date: 20110224
  Transmission Date: 20120608
  Serious: No
  Sender: FDA-Public Use
  Company Number: US-ABBOTT-11P-163-0707690-00

PATIENT
  Age: 23 Year
  Sex: Female

DRUGS (6)
  1. BENTYL [Concomitant]
     Indication: CROHN'S DISEASE
     Dosage: UP TO 3 TIMES A DAY
     Route: 048
  2. LOMOTIL [Concomitant]
     Indication: DIARRHOEA
     Route: 048
  3. PROZAC [Concomitant]
     Indication: BIPOLAR DISORDER
     Dosage: DAILY
  4. LAMICTAL [Concomitant]
     Indication: BIPOLAR DISORDER
     Dosage: DAILY
  5. HUMIRA [Suspect]
     Indication: CROHN'S DISEASE
     Dates: start: 20101201
  6. ENABLEX [Concomitant]
     Indication: BLADDER SPASM
     Route: 048

REACTIONS (4)
  - INJECTION SITE PAIN [None]
  - BIPOLAR DISORDER [None]
  - INJECTION SITE NODULE [None]
  - INJECTION SITE PRURITUS [None]
